FAERS Safety Report 10005168 (Version 1)
Quarter: 2014Q1

REPORT INFORMATION
  Report Type: Spontaneous
  Country: GB (occurrence: GB)
  Receive Date: 20140312
  Receipt Date: 20140312
  Transmission Date: 20141002
  Serious: Yes (Other)
  Sender: FDA-Public Use
  Company Number: PHHY2014GB026790

PATIENT
  Sex: Female

DRUGS (2)
  1. BROMOCRIPTINE [Suspect]
     Indication: PROLACTINOMA
     Dosage: 10 MG, BID
  2. BROMOCRIPTINE [Suspect]
     Indication: HYPERPROLACTINAEMIA
     Dosage: 10 MG, FOUR TIMES IN A WEEK

REACTIONS (2)
  - Impulse-control disorder [Recovered/Resolved]
  - Pathological gambling [Recovered/Resolved]
